FAERS Safety Report 11525815 (Version 1)
Quarter: 2015Q3

REPORT INFORMATION
  Report Type: Spontaneous
  Country: US (occurrence: US)
  Receive Date: 20150918
  Receipt Date: 20150918
  Transmission Date: 20151125
  Serious: No
  Sender: FDA-Public Use
  Company Number: ALCN2015US005703

PATIENT
  Age: 72 Year
  Sex: Female

DRUGS (1)
  1. ICAPS AREDS [Suspect]
     Active Substance: MINERALS\VITAMINS
     Indication: PRODUCT USED FOR UNKNOWN INDICATION
     Dosage: 1 TABLET, BID
     Route: 048
     Dates: start: 201508, end: 20150910

REACTIONS (1)
  - Faeces discoloured [Not Recovered/Not Resolved]

NARRATIVE: CASE EVENT DATE: 20150908
